FAERS Safety Report 13041316 (Version 1)
Quarter: 2016Q4

REPORT INFORMATION
  Report Type: Spontaneous
  Country: US (occurrence: US)
  Receive Date: 20161219
  Receipt Date: 20161219
  Transmission Date: 20170207
  Serious: Yes (Other)
  Sender: FDA-Public Use
  Company Number: US-ROCHE-1059989

PATIENT
  Sex: Male

DRUGS (2)
  1. ZELBORAF [Suspect]
     Active Substance: VEMURAFENIB
     Indication: METASTATIC MALIGNANT MELANOMA
     Route: 048
  2. ZELBORAF [Suspect]
     Active Substance: VEMURAFENIB
     Route: 048

REACTIONS (18)
  - Nausea [Unknown]
  - Chills [Unknown]
  - Mass [Unknown]
  - Asthenia [Unknown]
  - Rash [Unknown]
  - Arthralgia [Unknown]
  - Haemoglobin decreased [Unknown]
  - Micturition urgency [Unknown]
  - Urinary incontinence [Unknown]
  - Haematocrit decreased [Unknown]
  - Platelet count decreased [Unknown]
  - Fatigue [Unknown]
  - Alopecia [Unknown]
  - Blood pressure decreased [Unknown]
  - Squamous cell carcinoma [Unknown]
  - Ill-defined disorder [Unknown]
  - Constipation [Unknown]
  - Decreased appetite [Unknown]
